FAERS Safety Report 15286536 (Version 3)
Quarter: 2018Q4

REPORT INFORMATION
  Report Type: Spontaneous
  Country: US (occurrence: US)
  Receive Date: 20180816
  Receipt Date: 20181025
  Transmission Date: 20190204
  Serious: Yes (Hospitalization, Other)
  Sender: FDA-Public Use
  Company Number: US-BRISTOL-MYERS SQUIBB COMPANY-BMS-2018-072539

PATIENT
  Age: 64 Year
  Sex: Female

DRUGS (5)
  1. KETOCONAZOLE. [Interacting]
     Active Substance: KETOCONAZOLE
     Indication: ECZEMA
     Route: 061
  2. FLUOCINONIDE. [Interacting]
     Active Substance: FLUOCINONIDE
     Indication: ECZEMA
     Dosage: UNK UNK, BID
     Route: 061
  3. ECONAZOLE /00418502/ [Interacting]
     Active Substance: ECONAZOLE NITRATE
     Indication: ECZEMA
     Dosage: UNK
     Route: 061
  4. CLOBETASOL [Interacting]
     Active Substance: CLOBETASOL
     Indication: ECZEMA
     Dosage: UNK, PRN
     Route: 061
  5. TRIAMCINOLONE ACETONIDE. [Suspect]
     Active Substance: TRIAMCINOLONE ACETONIDE
     Indication: ECZEMA
     Dosage: UNK UNK, BID
     Route: 061

REACTIONS (4)
  - Drug interaction [Recovering/Resolving]
  - Adrenal insufficiency [Recovering/Resolving]
  - Withdrawal syndrome [Recovering/Resolving]
  - Hypothalamic pituitary adrenal axis suppression [Recovering/Resolving]
